FAERS Safety Report 19595689 (Version 3)
Quarter: 2021Q3

REPORT INFORMATION
  Report Type: Spontaneous
  Country: CN (occurrence: CN)
  Receive Date: 20210722
  Receipt Date: 20210813
  Transmission Date: 20211014
  Serious: Yes (Hospitalization, Other)
  Sender: FDA-Public Use
  Company Number: CN-ACCORD-232683

PATIENT
  Age: 63 Year
  Sex: Female

DRUGS (2)
  1. PREDNISONE. [Concomitant]
     Active Substance: PREDNISONE
     Indication: RHEUMATOID ARTHRITIS
     Dosage: TWICE A DAY
  2. METHOTREXATE. [Suspect]
     Active Substance: METHOTREXATE
     Indication: RHEUMATOID ARTHRITIS
     Dosage: LONG?TERM ORAL METHOTREXATE TWICE A WEEK
     Route: 048
     Dates: end: 2020

REACTIONS (3)
  - Epstein-Barr virus infection [Recovered/Resolved]
  - Lymphoproliferative disorder [Recovered/Resolved]
  - Diffuse large B-cell lymphoma [Recovered/Resolved]

NARRATIVE: CASE EVENT DATE: 2020
